FAERS Safety Report 9471797 (Version 1)
Quarter: 2013Q3

REPORT INFORMATION
  Report Type: Spontaneous
  Country: US (occurrence: None)
  Receive Date: 20130819
  Receipt Date: 20130819
  Transmission Date: 20140515
  Serious: Yes (Hospitalization, Other)
  Sender: FDA-Public Use
  Company Number: AUR-APL-2013-06719

PATIENT
  Age: 23 Year
  Sex: Male

DRUGS (2)
  1. LAMOTRIGINE [Suspect]
     Indication: PRODUCT USED FOR UNKNOWN INDICATION
     Dosage: ( 150 MG, 1 D ) ORAL
     Route: 048
  2. FLUDROCORTISONE (FLUDROCORTISONE) [Concomitant]

REACTIONS (13)
  - Toxicity to various agents [None]
  - Agitation [None]
  - Grand mal convulsion [None]
  - Incorrect dose administered [None]
  - Lethargy [None]
  - Tachypnoea [None]
  - Blood pressure increased [None]
  - Heart rate increased [None]
  - Myoclonus [None]
  - Anxiety [None]
  - Ataxia [None]
  - Coma [None]
  - Delirium [None]
